FAERS Safety Report 7816716-0 (Version None)
Quarter: 2011Q4

REPORT INFORMATION
  Report Type: 
  Country: None (occurrence: None)
  Receive Date: 20111017
  Receipt Date: 20111011
  Transmission Date: 20120403
  Serious: No
  Sender: FDA-Public Use
  Company Number: US-PFIZER INC-2011224384

PATIENT
  Sex: Female

DRUGS (5)
  1. CLONAZEPAM [Concomitant]
     Indication: ANXIETY
     Dosage: 1 MG, 3X/DAY (1 MG TID PRN)
  2. CYMBALTA [Concomitant]
     Indication: DEPRESSION
     Dosage: 60 MG, 1X/DAY (60 MG ONE Q AM)
  3. BENZYLPENICILLOYL-POLYLYSINE [Suspect]
     Dosage: UNK
  4. TRAZODONE [Concomitant]
     Indication: SLEEP DISORDER
     Dosage: 100 MG, 1X/DAY (100 MG ONE HS)
  5. GEODON [Concomitant]
     Dosage: 80 MG, 1X/DAY (80 MG HS)
     Dates: end: 20070101

REACTIONS (1)
  - DRUG HYPERSENSITIVITY [None]
